FAERS Safety Report 25617015 (Version 2)
Quarter: 2025Q3

REPORT INFORMATION
  Report Type: Spontaneous
  Country: US (occurrence: US)
  Receive Date: 20250729
  Receipt Date: 20250910
  Transmission Date: 20251021
  Serious: No
  Sender: SHIONOGI
  Company Number: US-shionogi-202500007235

PATIENT
  Sex: Female

DRUGS (26)
  1. CEFIDEROCOL [Suspect]
     Active Substance: CEFIDEROCOL
     Indication: Device related infection
     Dates: start: 20250705
  2. CEFIDEROCOL [Suspect]
     Active Substance: CEFIDEROCOL
     Indication: Drug resistance
  3. CEFIDEROCOL [Suspect]
     Active Substance: CEFIDEROCOL
     Indication: Multiple-drug resistance
  4. CEFIDEROCOL [Suspect]
     Active Substance: CEFIDEROCOL
     Indication: Pseudomonas infection
  5. FLUCONAZOLE [Suspect]
     Active Substance: FLUCONAZOLE
     Indication: Device related infection
     Route: 048
     Dates: start: 20250621, end: 20250630
  6. IMIPENEM [Suspect]
     Active Substance: IMIPENEM
     Indication: Device related infection
     Dosage: RECEIVED X 3 DOSES
     Dates: start: 20250704, end: 20250705
  7. RELEBACTAM [Suspect]
     Active Substance: RELEBACTAM
     Indication: Device related infection
     Dosage: RECEIVED X 3 DOSES
     Dates: start: 20250704, end: 20250705
  8. CEFEPIME [Suspect]
     Active Substance: CEFEPIME HYDROCHLORIDE
     Indication: Device related infection
  9. MEROPENEM [Suspect]
     Active Substance: MEROPENEM
     Indication: Device related infection
     Dosage: Q8
     Dates: start: 20250702, end: 20250704
  10. MEROPENEM [Suspect]
     Active Substance: MEROPENEM
     Dosage: Q8
     Dates: start: 20250628, end: 20250702
  11. ALBUTEROL [Concomitant]
     Active Substance: ALBUTEROL
     Indication: Product used for unknown indication
     Dosage: ALBUTEROL 0.083%
     Dates: start: 20250703, end: 20250709
  12. ATORVASTATIN [Concomitant]
     Active Substance: ATORVASTATIN
     Indication: Product used for unknown indication
     Route: 048
     Dates: start: 20250617, end: 20250722
  13. HEPARIN [Concomitant]
     Active Substance: HEPARIN SODIUM
     Indication: Product used for unknown indication
     Dosage: 5000 UNITS
     Route: 058
     Dates: start: 20250725, end: 20250805
  14. HEPARIN [Concomitant]
     Active Substance: HEPARIN SODIUM
     Dosage: 5000 UNITS
     Route: 058
     Dates: start: 20250702, end: 20250721
  15. INSULIN GLARGINE [Concomitant]
     Active Substance: INSULIN GLARGINE
     Indication: Product used for unknown indication
     Dosage: 20 UNITS QHS
     Route: 058
     Dates: start: 20250703, end: 20250720
  16. INSULIN GLARGINE [Concomitant]
     Active Substance: INSULIN GLARGINE
     Dosage: 10 UNITS QHS
     Route: 058
     Dates: start: 20250721, end: 20250805
  17. INSULIN LISPRO [Concomitant]
     Active Substance: INSULIN LISPRO
     Indication: Product used for unknown indication
     Dosage: 0-12 UNIT SLIDING SCALE TID WITH MEALS AND QHS
     Route: 048
     Dates: start: 20250704, end: 20250805
  18. METHADONE [Concomitant]
     Active Substance: METHADONE HYDROCHLORIDE
     Indication: Product used for unknown indication
     Route: 048
     Dates: start: 20250618, end: 20250713
  19. METHADONE [Concomitant]
     Active Substance: METHADONE HYDROCHLORIDE
     Route: 048
     Dates: start: 20250714, end: 20250714
  20. METHADONE [Concomitant]
     Active Substance: METHADONE HYDROCHLORIDE
     Route: 048
     Dates: start: 20250715, end: 20250715
  21. METHADONE [Concomitant]
     Active Substance: METHADONE HYDROCHLORIDE
     Route: 048
     Dates: start: 20250716, end: 20250716
  22. METHADONE [Concomitant]
     Active Substance: METHADONE HYDROCHLORIDE
     Route: 048
     Dates: start: 20250717, end: 20250717
  23. METHADONE [Concomitant]
     Active Substance: METHADONE HYDROCHLORIDE
     Route: 048
     Dates: start: 20250718, end: 20250805
  24. METOPROLOL TARTRATE [Concomitant]
     Active Substance: METOPROLOL TARTRATE
     Indication: Product used for unknown indication
     Route: 048
     Dates: start: 20250628, end: 20250805
  25. MICAFUNGIN [Concomitant]
     Active Substance: MICAFUNGIN SODIUM
     Indication: Product used for unknown indication
     Dates: start: 20250701, end: 20250805
  26. VANCOMYCIN [Concomitant]
     Active Substance: VANCOMYCIN
     Indication: Product used for unknown indication
     Route: 048
     Dates: start: 20250702, end: 20250805

REACTIONS (1)
  - Liver function test increased [Recovering/Resolving]
